FAERS Safety Report 13646161 (Version 1)
Quarter: 2017Q2

REPORT INFORMATION
  Report Type: Spontaneous
  Country: US (occurrence: US)
  Receive Date: 20170612
  Receipt Date: 20170612
  Transmission Date: 20170830
  Serious: Yes (Life-Threatening, Hospitalization, Disabling, Other)
  Sender: FDA-Public Use
  Company Number: None

PATIENT
  Sex: Female
  Weight: 200.2 kg

DRUGS (4)
  1. INVEGA SUSTENNA [Suspect]
     Active Substance: PALIPERIDONE PALMITATE
     Dosage: QUANTITY:55 INJECTION(S);OTHER FREQUENCY:MONTHLY;?
     Route: 030
     Dates: start: 20111005
  2. TYLENOL [Concomitant]
     Active Substance: ACETAMINOPHEN
  3. ABILIFY [Suspect]
     Active Substance: ARIPIPRAZOLE
  4. SPARAS [Concomitant]

REACTIONS (11)
  - Obesity [None]
  - Blood cholesterol increased [None]
  - Gait disturbance [None]
  - Cellulitis [None]
  - Pain [None]
  - Constipation [None]
  - Haemorrhage [None]
  - Skin discolouration [None]
  - Insomnia [None]
  - Hypertension [None]
  - Vision blurred [None]

NARRATIVE: CASE EVENT DATE: 20111005
